APPROVED DRUG PRODUCT: DOXEPIN HYDROCHLORIDE
Active Ingredient: DOXEPIN HYDROCHLORIDE
Strength: EQ 25MG BASE
Dosage Form/Route: CAPSULE;ORAL
Application: A217975 | Product #002 | TE Code: AB
Applicant: PTS CONSULTING LLC
Approved: Aug 21, 2023 | RLD: No | RS: No | Type: RX